FAERS Safety Report 10795829 (Version 2)
Quarter: 2015Q3

REPORT INFORMATION
  Report Type: Spontaneous
  Country: US (occurrence: US)
  Receive Date: 20150216
  Receipt Date: 20150826
  Transmission Date: 20151125
  Serious: Yes (Other)
  Sender: FDA-Public Use
  Company Number: US-AMGEN-USASP2015013140

PATIENT
  Age: 84 Year
  Sex: Female

DRUGS (11)
  1. CARVEDILOL. [Concomitant]
     Active Substance: CARVEDILOL
  2. CALCIUM [Concomitant]
     Active Substance: CALCIUM
  3. EPIPEN [Concomitant]
     Active Substance: EPINEPHRINE
  4. POTASSIUM [Concomitant]
     Active Substance: POTASSIUM
  5. LISINOPRIL. [Concomitant]
     Active Substance: LISINOPRIL
  6. FENOPROFEN. [Concomitant]
     Active Substance: FENOPROFEN
  7. PROLIA [Suspect]
     Active Substance: DENOSUMAB
     Indication: OSTEOPOROSIS
     Dosage: UNK
     Route: 065
     Dates: start: 2013
  8. ELMIRON [Concomitant]
     Active Substance: PENTOSAN POLYSULFATE SODIUM
  9. NITROGLYCERIN. [Concomitant]
     Active Substance: NITROGLYCERIN
  10. HYDROCODONE [Concomitant]
     Active Substance: HYDROCODONE
  11. FUROSEMIDE. [Concomitant]
     Active Substance: FUROSEMIDE

REACTIONS (10)
  - Spinal fracture [Unknown]
  - Ankle fracture [Unknown]
  - Visual impairment [Unknown]
  - Spinal compression fracture [Unknown]
  - Back pain [Unknown]
  - Diarrhoea [Not Recovered/Not Resolved]
  - Fall [Unknown]
  - Lower limb fracture [Unknown]
  - Restless legs syndrome [Unknown]
  - Head injury [Unknown]

NARRATIVE: CASE EVENT DATE: 2014
